FAERS Safety Report 9406470 (Version 1)
Quarter: 2013Q3

REPORT INFORMATION
  Report Type: Spontaneous
  Country: JP (occurrence: JP)
  Receive Date: 20130718
  Receipt Date: 20130718
  Transmission Date: 20140515
  Serious: Yes (Other)
  Sender: FDA-Public Use
  Company Number: JP-009507513-1307JPN005515

PATIENT
  Age: 41 Year
  Sex: Male

DRUGS (5)
  1. REFLEX [Suspect]
     Dosage: 30MG DAILY
     Route: 048
  2. DIPHENHYDRAMINE HYDROCHLORIDE [Concomitant]
     Dosage: 3000MG DAILY
     Route: 048
  3. ZOLPIDEM TARTRATE [Concomitant]
     Dosage: 30MG DAILY
     Route: 048
  4. BROTIZOLAM [Concomitant]
     Dosage: 0.5MG DAILY
     Route: 048
  5. FLUNITRAZEPAM [Concomitant]
     Dosage: 5MG DAILY
     Route: 048

REACTIONS (1)
  - Intentional overdose [Unknown]
